FAERS Safety Report 5589697-0 (Version None)
Quarter: 2008Q1

REPORT INFORMATION
  Report Type: 
  Country: None (occurrence: None)
  Receive Date: 20080114
  Receipt Date: 20080108
  Transmission Date: 20080703
  Serious: Yes (Death, Hospitalization)
  Sender: FDA-Public Use
  Company Number: B0495526A

PATIENT
  Age: 74 Year
  Sex: Male
  Weight: 43 kg

DRUGS (16)
  1. CARBAMAZEPINE [Suspect]
     Indication: EPILEPSY
     Dates: start: 20070817, end: 20071018
  2. TOPIRAMATE [Concomitant]
  3. KEPPRA [Concomitant]
  4. ASTRIX [Concomitant]
  5. DIGOXIN [Concomitant]
  6. ISOSORBIDE DINITRATE [Concomitant]
  7. INHIBACE [Concomitant]
  8. ALDACTONE [Concomitant]
  9. DILATREND [Concomitant]
  10. GINKGO BILOBA [Concomitant]
  11. REBAMIPIDE [Concomitant]
  12. ULCERMIN [Concomitant]
  13. ZANTAC [Concomitant]
  14. MAGNESIUM OXIDE [Concomitant]
  15. FUROSEMIDE [Concomitant]
  16. FACTIVE [Concomitant]

REACTIONS (10)
  - CARDIAC DISORDER [None]
  - CONVULSION [None]
  - COUGH [None]
  - DEATH [None]
  - DEPRESSED LEVEL OF CONSCIOUSNESS [None]
  - DRUG TOXICITY [None]
  - MENTAL STATUS CHANGES [None]
  - PNEUMONIA ASPIRATION [None]
  - PRODUCTIVE COUGH [None]
  - PYREXIA [None]
